FAERS Safety Report 4876144-7 (Version None)
Quarter: 2006Q1

REPORT INFORMATION
  Report Type: 
  Country: None (occurrence: None)
  Receive Date: 20060106
  Receipt Date: 20051222
  Transmission Date: 20060701
  Serious: Yes (Other)
  Sender: FDA-Public Use
  Company Number: 200515155BCC

PATIENT
  Age: 62 Year
  Sex: Female

DRUGS (1)
  1. ALEVE [Suspect]
     Indication: PAIN IN EXTREMITY
     Dosage: 220 MG, QD, ORAL
     Route: 048
     Dates: start: 20050801, end: 20051215

REACTIONS (1)
  - BLOOD PRESSURE INCREASED [None]
